FAERS Safety Report 17100850 (Version 1)
Quarter: 2019Q4

REPORT INFORMATION
  Report Type: Spontaneous
  Country: CN (occurrence: CN)
  Receive Date: 20191202
  Receipt Date: 20191202
  Transmission Date: 20200122
  Serious: Yes (Other)
  Sender: FDA-Public Use
  Company Number: CN-VALIDUS PHARMACEUTICALS LLC-CN-2019VAL000805

PATIENT

DRUGS (4)
  1. TELMISARTAN. [Suspect]
     Active Substance: TELMISARTAN
     Indication: DIABETIC NEPHROPATHY
     Dosage: 40 MG,(1 IN 1 D)
     Route: 048
  2. TELMISARTAN. [Suspect]
     Active Substance: TELMISARTAN
     Dosage: 80 MG,(1 IN 1 D)
     Route: 048
  3. CALCITRIOL. [Suspect]
     Active Substance: CALCITRIOL
     Indication: DIABETIC NEPHROPATHY
     Dosage: 0.25 ?G, (1 IN 1 D)
     Route: 048
  4. CALCITRIOL. [Suspect]
     Active Substance: CALCITRIOL
     Dosage: 0.5 ?G, (1 IN 1 D)
     Route: 048

REACTIONS (1)
  - Angioedema [Unknown]
